FAERS Safety Report 5621339-8 (Version None)
Quarter: 2008Q1

REPORT INFORMATION
  Report Type: 
  Country: None (occurrence: None)
  Receive Date: 20080211
  Receipt Date: 20080131
  Transmission Date: 20080703
  Serious: Yes (Death)
  Sender: FDA-Public Use
  Company Number: US-BAYER-200812690NA

PATIENT
  Age: 71 Year
  Sex: Male

DRUGS (3)
  1. AVELOX [Suspect]
     Indication: DRUG USE FOR UNKNOWN INDICATION
     Dosage: UNIT DOSE: 400 MG
     Route: 048
     Dates: start: 20071201
  2. STEROIDS (NOS) [Concomitant]
     Dates: start: 20071201
  3. COUMADIN [Concomitant]
     Dates: start: 20071201

REACTIONS (1)
  - DEATH [None]
